FAERS Safety Report 21925657 (Version 1)
Quarter: 2023Q1

REPORT INFORMATION
  Report Type: Spontaneous
  Country: US (occurrence: US)
  Receive Date: 20230130
  Receipt Date: 20230130
  Transmission Date: 20230418
  Serious: No
  Sender: FDA-Public Use
  Company Number: US-BAYER-2023P005591

PATIENT
  Age: 36 Year
  Sex: Female
  Weight: 61.4 kg

DRUGS (2)
  1. ADEMPAS [Suspect]
     Active Substance: RIOCIGUAT
  2. SELEXIPAG [Suspect]
     Active Substance: SELEXIPAG
     Indication: Pulmonary hypertension
     Dosage: 1600 ?G 1 TIME EVERY 0.5 DAYS
     Route: 048

REACTIONS (1)
  - Headache [None]
